FAERS Safety Report 7536773-9 (Version None)
Quarter: 2011Q2

REPORT INFORMATION
  Report Type: 
  Country: None (occurrence: None)
  Receive Date: 20110608
  Receipt Date: 20110608
  Transmission Date: 20111010
  Serious: No
  Sender: FDA-Public Use
  Company Number: None

PATIENT
  Age: 46 Year
  Sex: Male
  Weight: 94.3482 kg

DRUGS (2)
  1. PRILOSEC [Suspect]
     Indication: GASTROOESOPHAGEAL REFLUX DISEASE
     Dosage: 20MG 1 CAPSULE 1X DAILY PO
     Route: 048
     Dates: start: 19980101, end: 20050101
  2. ACIPHEX [Suspect]
     Indication: GASTROOESOPHAGEAL REFLUX DISEASE
     Dosage: 20MG 1 TABLET 1X DAILY PO
     Route: 048
     Dates: start: 20050101, end: 20090101

REACTIONS (3)
  - OSTEOPOROSIS [None]
  - PAIN [None]
  - CONDITION AGGRAVATED [None]
